FAERS Safety Report 10256376 (Version 1)
Quarter: 2014Q2

REPORT INFORMATION
  Report Type: Report from Study
  Country: US (occurrence: US)
  Receive Date: 20140624
  Receipt Date: 20140624
  Transmission Date: 20141212
  Serious: Yes (Hospitalization)
  Sender: FDA-Public Use
  Company Number: US-ABBVIE-14P-163-1248204-00

PATIENT
  Age: 64 Year
  Sex: Female

DRUGS (14)
  1. HUMIRA [Suspect]
     Indication: RHEUMATOID ARTHRITIS
     Dates: start: 20120815
  2. JINTELI [Concomitant]
     Indication: HORMONE REPLACEMENT THERAPY
     Dosage: 28 1 MG/5 MCG
  3. CYTOMEL [Concomitant]
     Indication: HYPOTHYROIDISM
  4. LEVOTHYROXINE [Concomitant]
     Indication: HYPOTHYROIDISM
  5. TOPROL [Concomitant]
     Indication: ATRIAL FIBRILLATION
     Dosage: IN THE MORNING
  6. FLECAINIDE [Concomitant]
     Indication: ATRIAL FIBRILLATION
  7. DITROPAN [Concomitant]
     Indication: INCONTINENCE
     Dosage: IN EVENING
  8. SINGULAIR [Concomitant]
     Indication: HYPERSENSITIVITY
     Dosage: AT NIGHT
  9. REQUIP [Concomitant]
     Indication: RESTLESS LEGS SYNDROME
     Dosage: AT BEDTIME
  10. CELEBREX [Concomitant]
     Indication: RHEUMATOID ARTHRITIS
     Dosage: IN MORNING
  11. FOLIC ACID [Concomitant]
     Indication: PRODUCT USED FOR UNKNOWN INDICATION
     Dosage: AT BEDTIME
  12. FOLIC ACID [Concomitant]
     Indication: BLOOD PRESSURE
  13. NORVASC [Concomitant]
     Indication: BLOOD PRESSURE
     Dosage: IN THE MORNING
  14. PRISTIQ [Concomitant]
     Indication: DEPRESSION
     Dosage: AT BEDTIME
     Route: 048

REACTIONS (8)
  - Peritoneal adhesions [Recovering/Resolving]
  - Nausea [Recovering/Resolving]
  - Dizziness [Recovering/Resolving]
  - Cold sweat [Recovering/Resolving]
  - Malaise [Recovering/Resolving]
  - Atrial fibrillation [Unknown]
  - Drug dose omission [Unknown]
  - Endometriosis [Recovering/Resolving]
